FAERS Safety Report 21758716 (Version 1)
Quarter: 2022Q4

REPORT INFORMATION
  Report Type: Spontaneous
  Country: RU (occurrence: RU)
  Receive Date: 20221221
  Receipt Date: 20221221
  Transmission Date: 20230113
  Serious: No
  Sender: FDA-Public Use
  Company Number: RU-009507513-2212RUS006783

PATIENT
  Sex: Female

DRUGS (2)
  1. LAGEVRIO [Suspect]
     Active Substance: MOLNUPIRAVIR
     Indication: COVID-19 treatment
     Dosage: 4 DOSAGE FORM
     Route: 048
     Dates: start: 20221214
  2. UMIFENOVIR [Concomitant]
     Active Substance: UMIFENOVIR
     Dosage: UNK

REACTIONS (2)
  - Muscular weakness [Unknown]
  - Product use issue [Unknown]

NARRATIVE: CASE EVENT DATE: 20221214
